FAERS Safety Report 5842936-0 (Version None)
Quarter: 2008Q3

REPORT INFORMATION
  Report Type: 
  Country: None (occurrence: None)
  Receive Date: 20080811
  Receipt Date: 20080731
  Transmission Date: 20090109
  Serious: Yes (Hospitalization, Other)
  Sender: FDA-Public Use
  Company Number: DSU-2008-01161

PATIENT
  Age: 69 Year
  Sex: Female
  Weight: 81.6475 kg

DRUGS (6)
  1. BENICAR [Suspect]
     Indication: HYPERTENSION
     Dosage: 20 MG (20 MG, QD), PER ORAL, 40 MG, (40 MG, QD), PER ORAL
     Route: 048
     Dates: start: 20080401, end: 20080501
  2. BENICAR [Suspect]
     Indication: HYPERTENSION
     Dosage: 20 MG (20 MG, QD), PER ORAL, 40 MG, (40 MG, QD), PER ORAL
     Route: 048
     Dates: start: 20080501
  3. TOPROL-XL [Concomitant]
  4. ISOSORBIDE DINITRATE [Concomitant]
  5. PLAVIX [Concomitant]
  6. ASPIRIN [Concomitant]

REACTIONS (3)
  - CORONARY ARTERIAL STENT INSERTION [None]
  - DIZZINESS POSTURAL [None]
  - HYPOTENSION [None]
